FAERS Safety Report 9921157 (Version 1)
Quarter: 2014Q1

REPORT INFORMATION
  Report Type: Spontaneous
  Country: US (occurrence: None)
  Receive Date: 20140221
  Receipt Date: 20140221
  Transmission Date: 20141002
  Serious: Yes (Death)
  Sender: FDA-Public Use
  Company Number: None

PATIENT
  Sex: Male

DRUGS (1)
  1. TEMOZOLOMIDE [Suspect]
     Indication: NEOPLASM MALIGNANT
     Dosage: TAKE 3 CAPS FOR 5 DAYS  EVERY 28 DAYS  PO
     Route: 048
     Dates: start: 20131127

REACTIONS (1)
  - Disease progression [None]
